FAERS Safety Report 5815926-1 (Version None)
Quarter: 2008Q3

REPORT INFORMATION
  Report Type: 
  Country: None (occurrence: None)
  Receive Date: 20080721
  Receipt Date: 20080711
  Transmission Date: 20090109
  Serious: Yes (Death, Other)
  Sender: FDA-Public Use
  Company Number: GB-ROCHE-575487

PATIENT
  Age: 66 Year
  Sex: Male

DRUGS (9)
  1. RIBAVIRIN [Suspect]
     Indication: DRUG USE FOR UNKNOWN INDICATION
     Route: 048
     Dates: start: 20050125, end: 20050218
  2. PEG-INTERFERON ALFA 2B [Suspect]
     Indication: HEPATITIS C
     Dosage: REPORTED AS PEGINTERFERON ALFA-2B (RBE)
     Route: 058
     Dates: start: 20050125, end: 20050218
  3. FLUOXETINE [Concomitant]
     Indication: DEPRESSION
     Route: 048
  4. FUROSEMIDE [Concomitant]
     Route: 048
  5. METADONE [Concomitant]
     Route: 048
  6. OMEPRAZOLE [Concomitant]
     Route: 048
  7. ALBUTEROL [Concomitant]
     Route: 055
  8. SPIROLACTONE [Concomitant]
     Indication: ASCITES
     Route: 048
  9. THIAMINE [Concomitant]
     Route: 048

REACTIONS (6)
  - BLOOD BILIRUBIN INCREASED [None]
  - ENCEPHALOPATHY [None]
  - HEPATIC FAILURE [None]
  - HYPOTENSION [None]
  - HYPOTHERMIA [None]
  - RENAL FAILURE ACUTE [None]
